FAERS Safety Report 19933501 (Version 1)
Quarter: 2021Q4

REPORT INFORMATION
  Report Type: Spontaneous
  Country: BE (occurrence: BE)
  Receive Date: 20211008
  Receipt Date: 20211008
  Transmission Date: 20220303
  Serious: Yes (Life-Threatening, Hospitalization, Other)
  Sender: FDA-Public Use
  Company Number: BE-MLMSERVICE-20210929-3095273-1

PATIENT
  Age: 56 Year
  Sex: Female

DRUGS (11)
  1. MORPHINE SULFATE [Suspect]
     Active Substance: MORPHINE SULFATE
     Indication: Cancer pain
     Dosage: 520 MG, QD
     Route: 048
  2. MORPHINE [Suspect]
     Active Substance: MORPHINE
     Indication: Cancer pain
  3. METHYLPREDNISOLONE [Concomitant]
     Active Substance: METHYLPREDNISOLONE
     Indication: Cancer pain
  4. REMIFENTANIL [Concomitant]
     Active Substance: REMIFENTANIL
     Indication: Sedation
     Route: 041
  5. BUPIVACAINE [Concomitant]
     Active Substance: BUPIVACAINE
     Indication: Cancer pain
  6. KETAMINE [Concomitant]
     Active Substance: KETAMINE
     Indication: Cancer pain
     Route: 048
  7. METAMIZOLE [Concomitant]
     Active Substance: METAMIZOLE
     Indication: Cancer pain
     Route: 048
  8. CLONIDINE [Concomitant]
     Active Substance: CLONIDINE
     Indication: Cancer pain
  9. AMITRIPTYLINE [Concomitant]
     Active Substance: AMITRIPTYLINE
     Indication: Cancer pain
  10. PROPOFOL [Concomitant]
     Active Substance: PROPOFOL
     Indication: Sedation
     Route: 041
  11. PREGABALIN [Concomitant]
     Active Substance: PREGABALIN
     Indication: Cancer pain
     Route: 048

REACTIONS (7)
  - Respiratory depression [Recovered/Resolved]
  - Toxicity to various agents [Recovered/Resolved]
  - Overdose [Recovered/Resolved]
  - Product administration error [Recovered/Resolved]
  - Sedation [Recovered/Resolved]
  - Vomiting [Recovered/Resolved]
  - Loss of consciousness [Recovered/Resolved]
